FAERS Safety Report 7270060-1 (Version None)
Quarter: 2011Q1

REPORT INFORMATION
  Report Type: 
  Country: None (occurrence: None)
  Receive Date: 20110202
  Receipt Date: 20110128
  Transmission Date: 20110831
  Serious: Yes (Other)
  Sender: FDA-Public Use
  Company Number: BR-ROCHE-756373

PATIENT
  Sex: Female
  Weight: 75 kg

DRUGS (3)
  1. LABIRIN [Interacting]
     Indication: LABYRINTHITIS
     Dosage: 1 TAB AT NIGHT FOR 3 DAYS
     Route: 065
     Dates: start: 20090101, end: 20090101
  2. FLUOXETINE [Concomitant]
     Indication: ANXIETY
  3. RIVOTRIL [Suspect]
     Indication: DEPRESSION
     Dosage: HALF TABLET IN MORNING AND HALF TABLET AT NIGHT
     Route: 065
     Dates: start: 20010101

REACTIONS (4)
  - BLOOD CHOLESTEROL INCREASED [None]
  - TACHYCARDIA [None]
  - LABYRINTHITIS [None]
  - DRUG INTERACTION [None]
